FAERS Safety Report 24098288 (Version 2)
Quarter: 2024Q3

REPORT INFORMATION
  Report Type: Spontaneous
  Country: US (occurrence: US)
  Receive Date: 20240716
  Receipt Date: 20240806
  Transmission Date: 20241017
  Serious: Yes (Other)
  Sender: TEVA
  Company Number: US-TEVA-VS-3219053

PATIENT
  Age: 60 Year
  Sex: Male
  Weight: 73 kg

DRUGS (4)
  1. TENOFOVIR [Suspect]
     Active Substance: TENOFOVIR
     Indication: HIV infection
     Route: 065
  2. VELPATASVIR [Concomitant]
     Active Substance: VELPATASVIR
     Indication: Antiretroviral therapy
     Dosage: 12 WEEK COURSE
  3. LAMIVUDINE [Suspect]
     Active Substance: LAMIVUDINE
     Indication: HIV infection
     Route: 065
  4. SOFOSBUVIR [Concomitant]
     Active Substance: SOFOSBUVIR
     Indication: Antiretroviral therapy
     Dosage: 12 WEEK COURSE

REACTIONS (3)
  - End stage renal disease [Unknown]
  - Toxicity to various agents [Unknown]
  - Drug ineffective [Unknown]
